FAERS Safety Report 5043029-5 (Version None)
Quarter: 2006Q2

REPORT INFORMATION
  Report Type: 
  Country: None (occurrence: None)
  Receive Date: 20060627
  Receipt Date: 20060608
  Transmission Date: 20061013
  Serious: Yes (Death, Life-Threatening, Hospitalization)
  Sender: FDA-Public Use
  Company Number: FR-2006-011771

PATIENT
  Age: 26 Year
  Sex: Female
  Weight: 58 kg

DRUGS (5)
  1. MIRENA [Suspect]
     Dosage: 20 UG/DAY, INTRA-UTERINE
     Route: 015
     Dates: start: 20050928, end: 20060225
  2. ATARAX [Suspect]
     Dosage: ORAL
     Route: 048
     Dates: start: 20060112, end: 20060101
  3. HERBAL PREPARATION SOLUTION [Suspect]
     Dosage: ORAL
     Route: 048
     Dates: start: 20051201
  4. ZELITREX /DEN/ (VALACICLOVIR) [Concomitant]
  5. CANOL (HERBAL EXTRACT NOS) [Concomitant]

REACTIONS (16)
  - ACNE [None]
  - CEREBRAL ASPERGILLOSIS [None]
  - COAGULATION FACTOR V LEVEL DECREASED [None]
  - COMPLICATIONS OF TRANSPLANT SURGERY [None]
  - CYTOLYTIC HEPATITIS [None]
  - FACE OEDEMA [None]
  - GENERAL PHYSICAL HEALTH DETERIORATION [None]
  - HEPATIC ENCEPHALOPATHY [None]
  - HEPATIC NECROSIS [None]
  - JAUNDICE [None]
  - LIVER TRANSPLANT [None]
  - LIVER TRANSPLANT REJECTION [None]
  - MUSCULOSKELETAL STIFFNESS [None]
  - OEDEMA PERIPHERAL [None]
  - PROTHROMBIN TIME PROLONGED [None]
  - PRURITUS [None]
